FAERS Safety Report 10262780 (Version 2)
Quarter: 2014Q2

REPORT INFORMATION
  Report Type: Report from Study
  Country: US (occurrence: US)
  Receive Date: 20140626
  Receipt Date: 20140626
  Transmission Date: 20141212
  Serious: Yes (Death)
  Sender: FDA-Public Use
  Company Number: US-MYLANLABS-2013S1016075

PATIENT
  Age: 55 Year
  Sex: Male

DRUGS (9)
  1. CLOZAPINE [Suspect]
     Route: 048
     Dates: start: 20101018
  2. LAMOTRIGINE [Concomitant]
  3. RIVASTIGMINE [Concomitant]
  4. IMIPRAMINE [Concomitant]
  5. FLUOXETINE [Concomitant]
  6. BENZATROPINE [Concomitant]
  7. CRESTOR [Concomitant]
  8. CARVEDILOL [Concomitant]
  9. DIGOXIN [Concomitant]

REACTIONS (1)
  - Death [Fatal]
